FAERS Safety Report 6986733-1 (Version None)
Quarter: 2010Q3

REPORT INFORMATION
  Report Type: 
  Country: None (occurrence: None)
  Receive Date: 20100915
  Receipt Date: 20090729
  Transmission Date: 20110219
  Serious: No
  Sender: FDA-Public Use
  Company Number: US-WYE-H10367709

PATIENT
  Sex: Female
  Weight: 55.84 kg

DRUGS (3)
  1. PRISTIQ [Suspect]
     Indication: PELVIC PAIN
     Route: 048
     Dates: start: 20090724
  2. ESTROGEN NOS [Concomitant]
  3. ADDERALL 10 [Concomitant]

REACTIONS (1)
  - ABDOMINAL PAIN [None]
